FAERS Safety Report 6360843-4 (Version None)
Quarter: 2009Q3

REPORT INFORMATION
  Report Type: 
  Country: None (occurrence: None)
  Receive Date: 20090918
  Receipt Date: 20090907
  Transmission Date: 20100115
  Serious: Yes (Death)
  Sender: FDA-Public Use
  Company Number: JP-ROCHE-656263

PATIENT
  Age: 91 Year
  Sex: Male

DRUGS (1)
  1. TAMIFLU [Suspect]
     Indication: INFLUENZA
     Dosage: FORM: ORAL FORMULATION NOT OTHERWISE SPECIFIED
     Route: 048
     Dates: start: 20090901, end: 20090901

REACTIONS (1)
  - ATYPICAL MYCOBACTERIAL INFECTION [None]
